FAERS Safety Report 5261814-1 (Version None)
Quarter: 2007Q1

REPORT INFORMATION
  Report Type: 
  Country: None (occurrence: None)
  Receive Date: 20070310
  Receipt Date: 20070228
  Transmission Date: 20070707
  Serious: Yes (Other)
  Sender: FDA-Public Use
  Company Number: PHEH2006US14881

PATIENT
  Age: 57 Year
  Sex: Male

DRUGS (4)
  1. ZOMETA [Suspect]
     Indication: METASTASES TO BONE
     Dosage: EVERY THREE MONTHS
     Dates: start: 20040809, end: 20050721
  2. ADRIAMYCIN PFS [Concomitant]
     Indication: BREAST CANCER
     Dosage: 35 MG, UNK
     Dates: start: 20040616, end: 20060420
  3. DECADRON [Concomitant]
     Dosage: 8 MG, QW
     Route: 042
     Dates: start: 20040616, end: 20060420
  4. ALOXI [Concomitant]
     Dosage: 0.25 MG, QW
     Route: 042
     Dates: start: 20040616, end: 20060420

REACTIONS (4)
  - ERYTHEMA [None]
  - OSTEONECROSIS [None]
  - PAIN IN JAW [None]
  - SWELLING [None]
